FAERS Safety Report 5190929-1 (Version None)
Quarter: 2006Q4

REPORT INFORMATION
  Report Type: 
  Country: None (occurrence: None)
  Receive Date: 20061222
  Receipt Date: 20061212
  Transmission Date: 20070319
  Serious: Yes (Hospitalization)
  Sender: FDA-Public Use
  Company Number: US-ABBOTT-06P-163-0353173-00

PATIENT
  Sex: Female
  Weight: 54.934 kg

DRUGS (4)
  1. MAVIK [Suspect]
     Indication: DRUG USE FOR UNKNOWN INDICATION
  2. INTERFERON BETA [Suspect]
     Indication: MULTIPLE SCLEROSIS
     Route: 058
     Dates: start: 20060301
  3. INSULIN [Suspect]
     Indication: DRUG USE FOR UNKNOWN INDICATION
  4. NORTRIPTYLINE HCL [Concomitant]
     Indication: DRUG USE FOR UNKNOWN INDICATION

REACTIONS (12)
  - AGGRESSION [None]
  - AMNESIA [None]
  - APHASIA [None]
  - BLOOD GLUCOSE DECREASED [None]
  - DEPRESSED LEVEL OF CONSCIOUSNESS [None]
  - DISORIENTATION [None]
  - DROOLING [None]
  - FEELING ABNORMAL [None]
  - HEADACHE [None]
  - HYPERAESTHESIA [None]
  - LIP SWELLING [None]
  - STOMATITIS [None]
